FAERS Safety Report 26150610 (Version 1)
Quarter: 2025Q4

REPORT INFORMATION
  Report Type: Spontaneous
  Country: US (occurrence: US)
  Receive Date: 20251212
  Receipt Date: 20251212
  Transmission Date: 20260118
  Serious: No
  Sender: ALCON
  Company Number: US-ALCON LABORATORIES-ALC2025US006073

PATIENT
  Sex: Female

DRUGS (1)
  1. ACOLTREMON [Suspect]
     Active Substance: ACOLTREMON
     Indication: Product used for unknown indication
     Dosage: INSTILL 1 DROP INTO BOTH EYES EVERY TWELVE HOURS
     Route: 047
     Dates: start: 20251005, end: 20251014

REACTIONS (5)
  - Superficial injury of eye [Unknown]
  - Strabismus [Unknown]
  - Photophobia [Unknown]
  - Ocular discomfort [Unknown]
  - Eye pain [Unknown]
